FAERS Safety Report 23806596 (Version 1)
Quarter: 2024Q2

REPORT INFORMATION
  Report Type: Spontaneous
  Country: US (occurrence: US)
  Receive Date: 20240502
  Receipt Date: 20240502
  Transmission Date: 20240715
  Serious: No
  Sender: FDA-Public Use
  Company Number: US-HALEON-2169346

PATIENT

DRUGS (1)
  1. SENSODYNE RAPID RELIEF [Suspect]
     Active Substance: STANNOUS FLUORIDE
     Indication: Product used for unknown indication
     Dosage: EXPDATE:202507

REACTIONS (2)
  - Oral mucosal exfoliation [Unknown]
  - Oral pain [Unknown]
